FAERS Safety Report 8232365-7 (Version None)
Quarter: 2012Q1

REPORT INFORMATION
  Report Type: 
  Country: None (occurrence: None)
  Receive Date: 20120323
  Receipt Date: 20120320
  Transmission Date: 20120608
  Serious: Yes (Disabling)
  Sender: FDA-Public Use
  Company Number: US-GLAXOSMITHKLINE-A0970527A

PATIENT
  Age: 64 Year
  Sex: Male

DRUGS (2)
  1. LOVAZA [Suspect]
     Indication: BLOOD TRIGLYCERIDES INCREASED
     Dosage: 2G UNKNOWN
     Route: 048
     Dates: start: 20111201, end: 20120301
  2. NO CONCURRENT MEDICATION [Concomitant]

REACTIONS (2)
  - DIARRHOEA [None]
  - COLITIS [None]
